FAERS Safety Report 6147865-3 (Version None)
Quarter: 2009Q2

REPORT INFORMATION
  Report Type: 
  Country: None (occurrence: None)
  Receive Date: 20090408
  Receipt Date: 20090327
  Transmission Date: 20091009
  Serious: Yes (Other)
  Sender: FDA-Public Use
  Company Number: CA-PFIZER INC-2009190338

PATIENT

DRUGS (2)
  1. CHAMPIX [Suspect]
     Indication: SMOKING CESSATION THERAPY
     Dosage: UNK
  2. LORAZEPAM [Concomitant]
     Dosage: UNK

REACTIONS (2)
  - DRUG EXPOSURE VIA BREAST MILK [None]
  - POSTPARTUM DEPRESSION [None]
